FAERS Safety Report 18142031 (Version 1)
Quarter: 2020Q3

REPORT INFORMATION
  Report Type: Spontaneous
  Country: None (occurrence: US)
  Receive Date: 20200812
  Receipt Date: 20200812
  Transmission Date: 20201103
  Serious: No
  Sender: FDA-Public Use
  Company Number: US-LEXICON PHARMACEUTICALS, INC-20-1606-00615

PATIENT
  Age: 34 Year
  Sex: Male
  Weight: 74.91 kg

DRUGS (2)
  1. XERMELO [Suspect]
     Active Substance: TELOTRISTAT ETHYL
     Indication: DIARRHOEA
     Dates: start: 20200407
  2. LANREOTIDE [Concomitant]
     Active Substance: LANREOTIDE
     Indication: NEUROENDOCRINE TUMOUR

REACTIONS (1)
  - Constipation [Recovered/Resolved]

NARRATIVE: CASE EVENT DATE: 20200615
